FAERS Safety Report 9241726 (Version 1)
Quarter: 2013Q2

REPORT INFORMATION
  Report Type: Spontaneous
  Country: PT (occurrence: PT)
  Receive Date: 20130419
  Receipt Date: 20130419
  Transmission Date: 20140414
  Serious: Yes (Death, Other)
  Sender: FDA-Public Use
  Company Number: PT-ELI_LILLY_AND_COMPANY-PT201304002985

PATIENT
  Age: 32 Year
  Sex: Male

DRUGS (10)
  1. OLANZAPINE [Suspect]
  2. PROZAC [Suspect]
  3. HALOPERIDOL [Concomitant]
  4. QUETIAPINE [Concomitant]
  5. PAROXETINE [Concomitant]
  6. BROMAZEPAM [Concomitant]
  7. LORAZEPAM [Concomitant]
  8. RISPERIDONE [Concomitant]
  9. DIAZEPAM [Concomitant]
  10. NORDIAZEPAM [Concomitant]

REACTIONS (6)
  - Completed suicide [Fatal]
  - Toxicity to various agents [Fatal]
  - Acute pulmonary oedema [Unknown]
  - Angiopathy [Unknown]
  - Intentional overdose [Unknown]
  - Mouth haemorrhage [None]
